FAERS Safety Report 23655246 (Version 3)
Quarter: 2024Q3

REPORT INFORMATION
  Report Type: Spontaneous
  Country: US (occurrence: US)
  Receive Date: 20240320
  Receipt Date: 20240705
  Transmission Date: 20241017
  Serious: Yes (Other)
  Sender: BRISTOL MYERS SQUIBB
  Company Number: US-BRISTOL-MYERS SQUIBB COMPANY-2024-044763

PATIENT
  Age: 73 Year
  Sex: Female

DRUGS (2)
  1. POMALYST [Suspect]
     Active Substance: POMALIDOMIDE
     Indication: Plasma cell myeloma
     Route: 048
  2. POMALYST [Suspect]
     Active Substance: POMALIDOMIDE
     Dosage: FREQUENCY: TAKE 1 CAPSULE BY MOUTH WITH WATER W/ OR W/O FOOD AROUND SAME TIME DAILY ON DAYS 1-21 OF
     Route: 048

REACTIONS (2)
  - Pneumonia [Recovering/Resolving]
  - Nasopharyngitis [Not Recovered/Not Resolved]
